FAERS Safety Report 12494382 (Version 1)
Quarter: 2016Q2

REPORT INFORMATION
  Report Type: Report from Study
  Country: FR (occurrence: FR)
  Receive Date: 20160623
  Receipt Date: 20160623
  Transmission Date: 20160815
  Serious: Yes (Other)
  Sender: FDA-Public Use
  Company Number: PHHY2014FR031778

PATIENT
  Age: 64 Year
  Sex: Female
  Weight: 73 kg

DRUGS (14)
  1. SOLUPRED [Concomitant]
     Active Substance: PREDNISOLONE
     Dosage: 5 MG, QD
     Route: 048
     Dates: start: 20131002
  2. MYFORTIC [Suspect]
     Active Substance: MYCOPHENOLATE SODIUM
     Indication: LIVER TRANSPLANT
     Dosage: 360 MG, BID
     Route: 065
     Dates: start: 20130923
  3. MYFORTIC [Suspect]
     Active Substance: MYCOPHENOLATE SODIUM
     Dosage: 720 MG, QD
     Route: 065
     Dates: start: 20141003
  4. SOLUPRED [Concomitant]
     Active Substance: PREDNISOLONE
     Indication: IMMUNOSUPPRESSANT DRUG THERAPY
     Dosage: 5 MG, QD
     Route: 048
     Dates: start: 20130920
  5. PREVISCAN [Concomitant]
     Active Substance: FLUINDIONE
     Indication: VENOUS THROMBOSIS
     Route: 065
     Dates: start: 20131011
  6. CERTICAN [Suspect]
     Active Substance: EVEROLIMUS
     Dosage: 4 MG, QD
     Route: 048
     Dates: start: 20140206, end: 20140306
  7. MYFORTIC [Suspect]
     Active Substance: MYCOPHENOLATE SODIUM
     Dosage: 360 MG, BID
     Route: 065
     Dates: end: 20131127
  8. PROGRAF [Suspect]
     Active Substance: TACROLIMUS\TACROLIMUS ANHYDROUS
     Indication: LIVER TRANSPLANT
     Dosage: 4 MG, BID
     Route: 048
     Dates: start: 20130925, end: 20131212
  9. CERTICAN [Suspect]
     Active Substance: EVEROLIMUS
     Indication: LIVER TRANSPLANT
     Dosage: 3 MG, BID
     Route: 048
     Dates: start: 20131018
  10. CERTICAN [Suspect]
     Active Substance: EVEROLIMUS
     Dosage: 6 MG, QD
     Route: 048
     Dates: start: 20131213, end: 20140205
  11. MYFORTIC [Suspect]
     Active Substance: MYCOPHENOLATE SODIUM
     Dosage: 360 MG, QD
     Route: 065
     Dates: start: 20140206, end: 20141002
  12. CERTICAN [Suspect]
     Active Substance: EVEROLIMUS
     Dosage: 2 MG, QD
     Route: 048
     Dates: start: 20140307, end: 20141010
  13. MYFORTIC [Suspect]
     Active Substance: MYCOPHENOLATE SODIUM
     Dosage: 360 MG, BID
     Route: 065
     Dates: end: 20131016
  14. CORTANCYL [Concomitant]
     Active Substance: PREDNISONE
     Indication: IMMUNOSUPPRESSANT DRUG THERAPY
     Dosage: 5 MG, QD
     Route: 065
     Dates: start: 20131002, end: 20140306

REACTIONS (4)
  - Pancytopenia [Not Recovered/Not Resolved]
  - Asthenia [Not Recovered/Not Resolved]
  - Product use issue [Unknown]
  - Anaemia [Not Recovered/Not Resolved]

NARRATIVE: CASE EVENT DATE: 20131008
